FAERS Safety Report 13111553 (Version 5)
Quarter: 2019Q1

REPORT INFORMATION
  Report Type: Report from Study
  Country: GB (occurrence: GB)
  Receive Date: 20170112
  Receipt Date: 20190128
  Transmission Date: 20190417
  Serious: Yes (Death, Other)
  Sender: FDA-Public Use
  Company Number: GB-ROCHE-1822475

PATIENT

DRUGS (4)
  1. ABP 215 [Suspect]
     Active Substance: BEVACIZUMAB-AWWB
     Indication: NON-SMALL CELL LUNG CANCER
     Dosage: FOR 6 CYCLES
     Route: 042
  2. BEVACIZUMAB. [Suspect]
     Active Substance: BEVACIZUMAB
     Indication: NON-SMALL CELL LUNG CANCER
     Dosage: FOR 6 CYCLES
     Route: 042
  3. CARBOPLATIN. [Suspect]
     Active Substance: CARBOPLATIN
     Indication: NON-SMALL CELL LUNG CANCER
     Route: 065
  4. PACLITAXEL. [Suspect]
     Active Substance: PACLITAXEL
     Indication: NON-SMALL CELL LUNG CANCER
     Route: 065

REACTIONS (16)
  - Nausea [Unknown]
  - Hypertension [Unknown]
  - Pulmonary embolism [Unknown]
  - Death [Fatal]
  - Pulmonary haemorrhage [Unknown]
  - Pneumonia [Unknown]
  - Neuropathy peripheral [Unknown]
  - Proteinuria [Unknown]
  - Neutropenia [Unknown]
  - Anaemia [Unknown]
  - Haemoptysis [Unknown]
  - Dyspnoea [Unknown]
  - Gastrointestinal perforation [Unknown]
  - Impaired healing [Unknown]
  - Alopecia [Unknown]
  - Febrile neutropenia [Unknown]
